FAERS Safety Report 7949023-6 (Version None)
Quarter: 2011Q4

REPORT INFORMATION
  Report Type: 
  Country: None (occurrence: None)
  Receive Date: 20111130
  Receipt Date: 20111118
  Transmission Date: 20120403
  Serious: Yes (Hospitalization, Other)
  Sender: FDA-Public Use
  Company Number: US-ELI_LILLY_AND_COMPANY-US201111004070

PATIENT
  Sex: Female

DRUGS (5)
  1. PLAVIX [Concomitant]
  2. AVAPRO [Concomitant]
  3. LIPITOR [Concomitant]
  4. WATER PILLS [Concomitant]
  5. FORTEO [Suspect]
     Indication: OSTEOPOROSIS
     Dosage: 20 UG, QD
     Route: 065
     Dates: start: 20111025

REACTIONS (11)
  - CARDIAC FAILURE CONGESTIVE [None]
  - HEART RATE IRREGULAR [None]
  - PAIN [None]
  - BACK PAIN [None]
  - DYSPNOEA [None]
  - FEELING ABNORMAL [None]
  - PALPITATIONS [None]
  - BLOOD PRESSURE FLUCTUATION [None]
  - ARTHRALGIA [None]
  - BLOOD PRESSURE INCREASED [None]
  - BLOOD PRESSURE DECREASED [None]
